APPROVED DRUG PRODUCT: ZILEUTON
Active Ingredient: ZILEUTON
Strength: 600MG
Dosage Form/Route: TABLET, EXTENDED RELEASE;ORAL
Application: A215742 | Product #001 | TE Code: AB
Applicant: ANNORA PHARMA PRIVATE LTD
Approved: Oct 11, 2022 | RLD: No | RS: No | Type: RX